FAERS Safety Report 10169731 (Version 2)
Quarter: 2014Q2

REPORT INFORMATION
  Report Type: Report from Study
  Country: US (occurrence: US)
  Receive Date: 20140513
  Receipt Date: 20140522
  Transmission Date: 20141212
  Serious: Yes (Hospitalization)
  Sender: FDA-Public Use
  Company Number: US-ACTELION-A-NJ2014-98683

PATIENT
  Age: 46 Year
  Sex: Male

DRUGS (3)
  1. VELETRI [Suspect]
     Indication: SARCOIDOSIS
     Dosage: 7 NG/KG, PER MIN
     Route: 042
     Dates: start: 20140425
  2. LETAIRIS [Concomitant]
  3. ADCIRCA [Concomitant]

REACTIONS (1)
  - Transplant evaluation [Recovered/Resolved with Sequelae]
